FAERS Safety Report 4521043-3 (Version None)
Quarter: 2004Q4

REPORT INFORMATION
  Report Type: 
  Country: None (occurrence: None)
  Receive Date: 20041208
  Receipt Date: 20041126
  Transmission Date: 20050328
  Serious: Yes (Hospitalization)
  Sender: FDA-Public Use
  Company Number: FR-BRISTOL-MYERS SQUIBB COMPANY-12776563

PATIENT
  Age: 78 Year
  Sex: Male

DRUGS (9)
  1. APROVEL TABS 150 MG [Suspect]
     Indication: HYPERTENSION
     Route: 048
  2. CORDARONE [Concomitant]
  3. PREVISCAN [Concomitant]
  4. DIAMICRON [Concomitant]
  5. LEXOMIL [Concomitant]
  6. STABLON [Concomitant]
  7. AUGMENTIN '125' [Concomitant]
  8. TRIFLUCAN [Concomitant]
  9. SERETIDE [Concomitant]

REACTIONS (5)
  - ANAEMIA [None]
  - BRONCHITIS CHRONIC [None]
  - CONFUSIONAL STATE [None]
  - HAEMOGLOBIN DECREASED [None]
  - HYPONATRAEMIA [None]
